FAERS Safety Report 14634438 (Version 1)
Quarter: 2018Q1

REPORT INFORMATION
  Report Type: Spontaneous
  Country: FR (occurrence: FR)
  Receive Date: 20180314
  Receipt Date: 20180314
  Transmission Date: 20180509
  Serious: Yes (Death, Other)
  Sender: FDA-Public Use
  Company Number: FR-CIPLA LTD.-2018FR10860

PATIENT

DRUGS (2)
  1. GEMCITABINE [Suspect]
     Active Substance: GEMCITABINE\GEMCITABINE HYDROCHLORIDE
     Indication: MIXED HEPATOCELLULAR CHOLANGIOCARCINOMA
     Dosage: 100 MG/M2, EVERY WEEK FOR 2 WK, WITH 1 WK OF REST BEFORE A NEW CYCLE
     Route: 042
  2. CISPLATIN. [Suspect]
     Active Substance: CISPLATIN
     Indication: MIXED HEPATOCELLULAR CHOLANGIOCARCINOMA
     Dosage: 25 MG/M2, EVERY WEEK FOR 2 WK, WITH 1 WK OF REST BEFORE A NEW CYCLE
     Route: 042

REACTIONS (2)
  - Metastases to bone [Unknown]
  - Death [Fatal]
